FAERS Safety Report 10064504 (Version 1)
Quarter: 2014Q2

REPORT INFORMATION
  Report Type: Spontaneous
  Country: FR (occurrence: None)
  Receive Date: 20140404
  Receipt Date: 20140404
  Transmission Date: 20141212
  Serious: No
  Sender: FDA-Public Use
  Company Number: 2014-000809

PATIENT
  Sex: Female

DRUGS (8)
  1. ACTONEL (RISEDRONATE SODIUM) TABLET 75MG [Suspect]
     Indication: OSTEOPOROSIS
     Dosage: 75MG, 2 CONSECUTIVE DAYS PER MONTH ORAL
     Route: 048
     Dates: start: 201211
  2. FEMARA (LETROZOLE) [Suspect]
     Indication: BREAST CANCER
     Route: 048
     Dates: start: 20120801, end: 20140210
  3. FLECTOR (DICLOFENAC SODIUM) [Concomitant]
  4. DAFALGAN (PARACETAMOL) [Concomitant]
  5. UNVEDOSE (COLECALCIFEROL) [Concomitant]
  6. INEXIUM (ESOMEPRAZOLE MAGNESIUM) (ESOMEPRAZOLE MAGNESIUM) [Concomitant]
  7. ZALDIAR (PARACETAMOL TRAMADOL HYDROCHLORIDE [Concomitant]
  8. CARTREX (ACECLOFENAC) [Concomitant]

REACTIONS (1)
  - Organising pneumonia [None]
